FAERS Safety Report 17946806 (Version 1)
Quarter: 2020Q2

REPORT INFORMATION
  Report Type: Spontaneous
  Country: AU (occurrence: AU)
  Receive Date: 20200626
  Receipt Date: 20200626
  Transmission Date: 20200714
  Serious: Yes (Other)
  Sender: FDA-Public Use
  Company Number: AU-ALKEM LABORATORIES LIMITED-AU-ALKEM-2020-02863

PATIENT
  Age: 44 Year
  Sex: Male

DRUGS (3)
  1. CLOZAPINE. [Suspect]
     Active Substance: CLOZAPINE
     Indication: PRODUCT USED FOR UNKNOWN INDICATION
     Dosage: UNK
     Route: 065
  2. OLANZAPINE. [Suspect]
     Active Substance: OLANZAPINE
     Indication: PRODUCT USED FOR UNKNOWN INDICATION
     Dosage: UNK
     Route: 065
  3. PALIPERIDONE. [Concomitant]
     Active Substance: PALIPERIDONE
     Indication: PRODUCT USED FOR UNKNOWN INDICATION
     Dosage: UNK
     Route: 065

REACTIONS (12)
  - Abnormal behaviour [Unknown]
  - Autonomic nervous system imbalance [Unknown]
  - Mutism [Unknown]
  - Neuroleptic malignant syndrome [Unknown]
  - Waxy flexibility [Unknown]
  - Catatonia [Unknown]
  - Staring [Unknown]
  - Rebound psychosis [Unknown]
  - Affect lability [Unknown]
  - Muscle rigidity [Unknown]
  - Hyperhidrosis [Unknown]
  - Stereotypy [Unknown]
